FAERS Safety Report 17529777 (Version 1)
Quarter: 2020Q1

REPORT INFORMATION
  Report Type: Spontaneous
  Country: FR (occurrence: FR)
  Receive Date: 20200311
  Receipt Date: 20200311
  Transmission Date: 20200409
  Serious: Yes (Hospitalization)
  Sender: FDA-Public Use
  Company Number: FR-MYLANLABS-2020M1025833

PATIENT
  Age: 64 Year
  Sex: Female
  Weight: 48 kg

DRUGS (5)
  1. ONBREZ BREEZHALER [Concomitant]
     Active Substance: INDACATEROL
     Dosage: 1 DOSAGE FORM, QD
     Route: 055
  2. ATORVASTATINE                      /01326101/ [Concomitant]
     Active Substance: ATORVASTATIN
     Indication: DYSLIPIDAEMIA
     Dosage: 10 MILLIGRAM, QD
     Route: 048
  3. LORAZEPAM. [Concomitant]
     Active Substance: LORAZEPAM
     Dosage: 5 MILLIGRAM, QD
     Route: 048
  4. LEVOTHYROX [Concomitant]
     Active Substance: LEVOTHYROXINE
     Indication: HYPOTHYROIDISM
     Dosage: 1 DOSAGE FORM, QD
     Route: 048
  5. INDAPAMIDE. [Suspect]
     Active Substance: INDAPAMIDE
     Indication: HYPERTENSION
     Dosage: 1.5 MILLIGRAM, QD
     Route: 048

REACTIONS (3)
  - Atrial fibrillation [Recovered/Resolved]
  - Metabolic alkalosis [Recovering/Resolving]
  - Hypokalaemia [Recovered/Resolved]

NARRATIVE: CASE EVENT DATE: 20200118
